FAERS Safety Report 6918683-0 (Version None)
Quarter: 2010Q3

REPORT INFORMATION
  Report Type: 
  Country: None (occurrence: None)
  Receive Date: 20100811
  Receipt Date: 20100728
  Transmission Date: 20110219
  Serious: Yes (Hospitalization, Other)
  Sender: FDA-Public Use
  Company Number: PHHY2009GB14703

PATIENT
  Sex: Male

DRUGS (1)
  1. CLOZARIL [Suspect]
     Indication: SCHIZOPHRENIA
     Dosage: UNK
     Route: 048
     Dates: start: 20070606, end: 20100528

REACTIONS (6)
  - ABDOMINAL NEOPLASM [None]
  - CARDIAC FAILURE [None]
  - CONDUCTION DISORDER [None]
  - HEART VALVE REPLACEMENT [None]
  - OEDEMA PERIPHERAL [None]
  - PLATELET COUNT DECREASED [None]
